FAERS Safety Report 9223225 (Version 2)
Quarter: 2013Q2

REPORT INFORMATION
  Report Type: Spontaneous
  Country: US (occurrence: US)
  Receive Date: 20130410
  Receipt Date: 20130510
  Transmission Date: 20140414
  Serious: Yes (Other)
  Sender: FDA-Public Use
  Company Number: US-INCYTE CORPORATION-2013IN000108

PATIENT
  Age: 66 Year
  Sex: Female
  Weight: 53.52 kg

DRUGS (4)
  1. JAKAFI [Suspect]
     Indication: MYELODYSPLASTIC SYNDROME
     Dosage: 20 MG, BID
     Route: 048
     Dates: start: 201207, end: 201210
  2. JAKAFI [Suspect]
     Indication: MYELOPROLIFERATIVE DISORDER
     Dosage: 10 MG, QD
     Route: 048
     Dates: start: 201210, end: 201302
  3. CALCIUM [Concomitant]
  4. ASPIRIN [Concomitant]
     Dosage: UNK
     Dates: end: 201210

REACTIONS (13)
  - Acute myeloid leukaemia [Recovering/Resolving]
  - Pancytopenia [Unknown]
  - Hyperkalaemia [Recovered/Resolved]
  - Gout [Recovering/Resolving]
  - Feeling abnormal [Unknown]
  - Abdominal distension [Unknown]
  - Muscle spasms [Unknown]
  - Fatigue [Unknown]
  - Oropharyngeal pain [Unknown]
  - Leukopenia [Not Recovered/Not Resolved]
  - Thrombocytopenia [Not Recovered/Not Resolved]
  - Anaemia [Unknown]
  - Contusion [Unknown]
